FAERS Safety Report 4731125-9 (Version None)
Quarter: 2005Q3

REPORT INFORMATION
  Report Type: 
  Country: None (occurrence: None)
  Receive Date: 20050721
  Receipt Date: 20050506
  Transmission Date: 20060218
  Serious: No
  Sender: FDA-Public Use
  Company Number: 2005SP000599

PATIENT
  Sex: Male

DRUGS (2)
  1. LUNESTA [Suspect]
     Dosage: ORAL
     Route: 048
  2. HYDROCODONE [Concomitant]

REACTIONS (2)
  - DRUG INTERACTION [None]
  - PAIN [None]
